FAERS Safety Report 4434362-6 (Version None)
Quarter: 2004Q3

REPORT INFORMATION
  Report Type: 
  Country: None (occurrence: None)
  Receive Date: 20040825
  Receipt Date: 20040811
  Transmission Date: 20050211
  Serious: Yes (Other)
  Sender: FDA-Public Use
  Company Number: USA030330811

PATIENT
  Age: 77 Year
  Sex: Female
  Weight: 50 kg

DRUGS (8)
  1. FORTEO [Suspect]
     Indication: OSTEOPOROSIS
     Dosage: 20 UG DAY
     Dates: start: 20030303
  2. DARVOCET-N 100 [Suspect]
     Indication: PAIN
  3. IMDUR (ISOSROBIDE MONONITRATE) [Concomitant]
  4. LIVOSTIN [Concomitant]
  5. MAGIC MOUTHWASH [Concomitant]
  6. NORVASC [Concomitant]
  7. NUPERCAINE (CINCHOCAINE HYDROCHLORIDE) [Concomitant]
  8. SYNTHROID [Concomitant]

REACTIONS (9)
  - COLONIC HAEMORRHAGE [None]
  - DIVERTICULITIS [None]
  - FAECES DISCOLOURED [None]
  - FALL [None]
  - HIP FRACTURE [None]
  - LIVER DISORDER [None]
  - PRURITUS [None]
  - RASH ERYTHEMATOUS [None]
  - SKIN DISCOLOURATION [None]
